FAERS Safety Report 9368998 (Version 1)
Quarter: 2013Q2

REPORT INFORMATION
  Report Type: Report from Study
  Country: FR (occurrence: FR)
  Receive Date: 20130626
  Receipt Date: 20130626
  Transmission Date: 20140414
  Serious: Yes (Hospitalization)
  Sender: FDA-Public Use
  Company Number: PHHY2013FR064179

PATIENT
  Age: 74 Year
  Sex: Male
  Weight: 63 kg

DRUGS (13)
  1. GLIVEC [Suspect]
     Indication: CHRONIC MYELOID LEUKAEMIA
     Dosage: 400 MG, DAILY
     Route: 048
     Dates: start: 20040820
  2. DIAMICRON [Concomitant]
     Dosage: UNK UKN, UNK
  3. ALLOPURINOL [Concomitant]
     Dosage: UNK UKN, UNK
  4. FLUOXETINE [Concomitant]
     Dosage: UNK UKN, UNK
  5. ATENOLOL [Concomitant]
     Dosage: UNK UKN, UNK
  6. LASILIX [Concomitant]
     Dosage: UNK UKN, UNK
  7. ZESTRIL [Concomitant]
     Dosage: UNK UKN, UNK
  8. INIPOMP [Concomitant]
     Dosage: UNK UKN, UNK
  9. GLUCOR [Concomitant]
     Dosage: UNK UKN, UNK
  10. DIFFU K [Concomitant]
     Dosage: UNK UKN, UNK
  11. BIPERIDYS [Concomitant]
     Dosage: UNK UKN, UNK
  12. KARDEGIC [Concomitant]
     Dosage: UNK UKN, UNK
  13. LORAZEPAM [Concomitant]
     Dosage: UNK UKN, UNK

REACTIONS (2)
  - Carotid sinus syndrome [Recovered/Resolved]
  - Sinus disorder [Recovered/Resolved]
